FAERS Safety Report 9168027 (Version 2)
Quarter: 2013Q2

REPORT INFORMATION
  Report Type: Report from Study
  Country: US (occurrence: US)
  Receive Date: 20130318
  Receipt Date: 20130515
  Transmission Date: 20140414
  Serious: No
  Sender: FDA-Public Use
  Company Number: US-VERTEX PHARMACEUTICALS INC.-2013-003476

PATIENT
  Age: 64 Year
  Sex: Female
  Weight: 63 kg

DRUGS (8)
  1. VX-950 (TELAPREVIR) [Suspect]
     Indication: HEPATITIS C
     Dosage: 750 MG, TID
     Route: 048
  2. PEGASYS [Suspect]
     Indication: HEPATITIS C
  3. RIBAVIRIN [Suspect]
     Indication: HEPATITIS C
     Dosage: 200 MG, UNK
  4. VALACYCLOVIR HYDROCHLORIDE [Concomitant]
     Dosage: 1 G, UNK
  5. PRILOSEC [Concomitant]
     Dosage: 10 MG, UNK
  6. PROZAC [Concomitant]
     Dosage: 10 MG, UNK
  7. VITAMIN B 12 [Concomitant]
     Dosage: 1000 ?G, UNK
  8. ASPIRIN [Concomitant]
     Dosage: 81 MG, UNK

REACTIONS (10)
  - Headache [Unknown]
  - Lethargy [Unknown]
  - Abdominal distension [Unknown]
  - Frontal sinus operation [Unknown]
  - Rash papular [Recovered/Resolved]
  - Diarrhoea [Unknown]
  - Frequent bowel movements [Unknown]
  - Haemorrhoids [Unknown]
  - Nausea [Unknown]
  - Vomiting [Unknown]
